FAERS Safety Report 9929987 (Version 1)
Quarter: 2014Q1

REPORT INFORMATION
  Report Type: Spontaneous
  Country: US (occurrence: US)
  Receive Date: 20140227
  Receipt Date: 20140227
  Transmission Date: 20141002
  Serious: No
  Sender: FDA-Public Use
  Company Number: US-AMGEN-USASP2013071411

PATIENT
  Age: 51 Year
  Sex: Male

DRUGS (1)
  1. ENBREL [Suspect]
     Indication: ANKYLOSING SPONDYLITIS
     Dosage: 25 MG, 2 TIMES/WK
     Route: 065
     Dates: start: 20020101, end: 201307

REACTIONS (11)
  - Injection site bruising [Unknown]
  - Influenza like illness [Unknown]
  - Musculoskeletal stiffness [Unknown]
  - Arthralgia [Unknown]
  - Mobility decreased [Unknown]
  - Bone disorder [Unknown]
  - Muscle atrophy [Unknown]
  - Muscle fatigue [Unknown]
  - White blood cell count abnormal [Unknown]
  - Injection site pruritus [Unknown]
  - Injection site rash [Unknown]
